FAERS Safety Report 7555361-1 (Version None)
Quarter: 2011Q2

REPORT INFORMATION
  Report Type: 
  Country: None (occurrence: None)
  Receive Date: 20110617
  Receipt Date: 20110608
  Transmission Date: 20111010
  Serious: Yes (Hospitalization, Other)
  Sender: FDA-Public Use
  Company Number: BE-ABBOTT-11P-013-0730446-02

PATIENT
  Sex: Male

DRUGS (10)
  1. LEKOVIT CA [Concomitant]
     Indication: VITAMIN SUPPLEMENTATION
     Dates: start: 20080101
  2. OMNIBIONTA [Concomitant]
     Indication: VITAMIN SUPPLEMENTATION
     Dates: start: 20031001
  3. FERROUS GLUCONATE [Concomitant]
     Indication: IRON DEFICIENCY
     Dates: start: 20020812
  4. PENTASA [Concomitant]
     Indication: CROHN'S DISEASE
  5. HUMIRA [Suspect]
     Indication: CROHN'S DISEASE
     Route: 058
     Dates: start: 20080527
  6. ALENDRONATE SODIUM [Concomitant]
     Indication: OSTEOPENIA
     Dates: start: 20090520
  7. FURACINE [Concomitant]
     Indication: MUCOSAL INFLAMMATION
     Route: 061
     Dates: start: 20091201
  8. AZATHIOPRINE [Concomitant]
     Indication: CROHN'S DISEASE
  9. MAGNESIUM CITRATE [Concomitant]
     Indication: MINERAL SUPPLEMENTATION
     Dates: start: 20021104
  10. FURACINE [Concomitant]
     Indication: NASAL DISORDER

REACTIONS (2)
  - GROIN ABSCESS [None]
  - LYMPHADENOPATHY [None]
